FAERS Safety Report 5090924-7 (Version None)
Quarter: 2006Q3

REPORT INFORMATION
  Report Type: 
  Country: None (occurrence: None)
  Receive Date: 20060828
  Receipt Date: 20060804
  Transmission Date: 20061208
  Serious: Yes (Disabling)
  Sender: FDA-Public Use
  Company Number: JP-ABBOTT-06P-087-0339635-00

PATIENT
  Sex: Male
  Weight: 80 kg

DRUGS (10)
  1. CEFZON [Suspect]
     Indication: PURULENCE
     Dates: start: 20030101
  2. CEFZON [Suspect]
     Indication: INJURY
     Dates: start: 20040101
  3. CEFZON [Suspect]
     Indication: INFECTION PROPHYLAXIS
     Route: 048
     Dates: start: 20060622, end: 20060624
  4. CELESTAMINE TAB [Suspect]
     Indication: INFECTION PROPHYLAXIS
     Route: 048
     Dates: start: 20060622, end: 20060624
  5. ALLOPURINOL [Concomitant]
     Indication: DRUG USE FOR UNKNOWN INDICATION
  6. HERBAL PREPARATION [Concomitant]
     Indication: DRUG USE FOR UNKNOWN INDICATION
  7. PROSULTIAMINE [Concomitant]
     Indication: DRUG USE FOR UNKNOWN INDICATION
     Route: 048
  8. BENZBROMARONE [Concomitant]
     Indication: DRUG USE FOR UNKNOWN INDICATION
     Dates: end: 20060724
  9. FENOFIBRATE [Concomitant]
     Indication: DRUG USE FOR UNKNOWN INDICATION
     Dates: end: 20060724
  10. URALYT-U [Concomitant]
     Indication: DRUG USE FOR UNKNOWN INDICATION
     Dates: end: 20060724

REACTIONS (9)
  - ARRHYTHMIA [None]
  - CHOLURIA [None]
  - GENERALISED ERYTHEMA [None]
  - HYPERSENSITIVITY [None]
  - LIVER DISORDER [None]
  - MALAISE [None]
  - NAUSEA [None]
  - PALPITATIONS [None]
  - RASH [None]
